FAERS Safety Report 8934912 (Version 1)
Quarter: 2012Q4

REPORT INFORMATION
  Report Type: 
  Country: JP (occurrence: JP)
  Receive Date: 20121129
  Receipt Date: 20121129
  Transmission Date: 20130627
  Serious: Yes (Other)
  Sender: FDA-Public Use
  Company Number: JP-PFIZER INC-2012299010

PATIENT
  Age: 7 None
  Sex: Female

DRUGS (2)
  1. LIPITOR [Suspect]
     Indication: HIGH CHOLESTEROL
     Dosage: 10 mg, 1x/day
     Route: 048
  2. CRESTOR [Concomitant]
     Dosage: 2.5 mg, UNK

REACTIONS (1)
  - Cerebral infarction [Unknown]
